FAERS Safety Report 8221749-9 (Version None)
Quarter: 2012Q1

REPORT INFORMATION
  Report Type: 
  Country: None (occurrence: None)
  Receive Date: 20120320
  Receipt Date: 20120320
  Transmission Date: 20120608
  Serious: No
  Sender: FDA-Public Use
  Company Number: None

PATIENT
  Sex: Male

DRUGS (2)
  1. UC SHORT PEN NEEDLES [Suspect]
     Dates: start: 20100518, end: 20120319
  2. LANTUS [Suspect]
     Dosage: 60 UNITS
     Route: 058
     Dates: start: 20100518, end: 20120319

REACTIONS (3)
  - INJECTION SITE DISCOMFORT [None]
  - INJECTION SITE IRRITATION [None]
  - INJECTION SITE PAIN [None]
